FAERS Safety Report 5185759-0 (Version None)
Quarter: 2006Q4

REPORT INFORMATION
  Report Type: 
  Country: None (occurrence: None)
  Receive Date: 20061220
  Receipt Date: 20061212
  Transmission Date: 20070319
  Serious: Yes (Other)
  Sender: FDA-Public Use
  Company Number: HU-BRISTOL-MYERS SQUIBB COMPANY-13613179

PATIENT
  Age: 54 Year
  Sex: Male
  Weight: 77 kg

DRUGS (1)
  1. APROVEL TABS 300 MG [Suspect]
     Indication: HYPERTENSION
     Route: 048
     Dates: start: 20061123, end: 20061205

REACTIONS (10)
  - ABDOMINAL DISCOMFORT [None]
  - ASTHENIA [None]
  - CHEST PAIN [None]
  - DYSPEPSIA [None]
  - HEADACHE [None]
  - MALAISE [None]
  - NAUSEA [None]
  - SEXUAL DYSFUNCTION [None]
  - TACHYCARDIA [None]
  - VERTIGO [None]
